FAERS Safety Report 17505944 (Version 2)
Quarter: 2020Q2

REPORT INFORMATION
  Report Type: Spontaneous
  Country: US (occurrence: US)
  Receive Date: 20200305
  Receipt Date: 20200512
  Transmission Date: 20200713
  Serious: No
  Sender: FDA-Public Use
  Company Number: US-GE HEALTHCARE LIFE SCIENCES-2020CSU000765

PATIENT
  Age: 82 Year
  Sex: Male
  Weight: 94 kg

DRUGS (3)
  1. VISIPAQUE [Suspect]
     Active Substance: IODIXANOL
     Indication: AORTIC VALVE STENOSIS
  2. VISIPAQUE [Suspect]
     Active Substance: IODIXANOL
     Indication: COMPUTERISED TOMOGRAM
     Dosage: 100 ML AT 5.0 ML/S
     Route: 042
     Dates: start: 20200210, end: 20200210
  3. VISIPAQUE [Suspect]
     Active Substance: IODIXANOL
     Indication: AORTIC VALVE REPLACEMENT
     Dosage: 20 ML AT 5.0 ML/S
     Route: 042
     Dates: start: 20200210, end: 20200210

REACTIONS (1)
  - Rash pruritic [Unknown]

NARRATIVE: CASE EVENT DATE: 20200210
